FAERS Safety Report 23368187 (Version 2)
Quarter: 2024Q2

REPORT INFORMATION
  Report Type: Spontaneous
  Country: CA (occurrence: CA)
  Receive Date: 20240105
  Receipt Date: 20240417
  Transmission Date: 20240716
  Serious: Yes (Congenital Anomaly, Other)
  Sender: FDA-Public Use
  Company Number: CA-AMGEN-CANSP2023233349

PATIENT
  Sex: Female
  Weight: 2.259 kg

DRUGS (2)
  1. AVSOLA [Suspect]
     Active Substance: INFLIXIMAB-AXXQ
     Indication: Exposure during pregnancy
     Dosage: UNK
     Route: 064
  2. AVSOLA [Suspect]
     Active Substance: INFLIXIMAB-AXXQ
     Dosage: UNK
     Route: 064

REACTIONS (3)
  - Spina bifida [Unknown]
  - Oxygen saturation decreased [Recovered/Resolved]
  - Paternal exposure during pregnancy [Unknown]

NARRATIVE: CASE EVENT DATE: 20240313
